FAERS Safety Report 23987944 (Version 2)
Quarter: 2024Q2

REPORT INFORMATION
  Report Type: Spontaneous
  Country: FR (occurrence: FR)
  Receive Date: 20240619
  Receipt Date: 20240625
  Transmission Date: 20240716
  Serious: Yes (Life-Threatening, Other)
  Sender: FDA-Public Use
  Company Number: FR-CELLTRION INC.-2024FR014567

PATIENT

DRUGS (4)
  1. RITUXIMAB [Suspect]
     Active Substance: RITUXIMAB
     Indication: B-cell lymphoma
     Dosage: 1400 MG, SINGLE
     Route: 058
     Dates: start: 20221002, end: 20221002
  2. CYCLOPHOSPHAMIDE [Suspect]
     Active Substance: CYCLOPHOSPHAMIDE
     Indication: B-cell lymphoma
     Dosage: 1350 MG, 1 TOTAL
     Route: 042
     Dates: start: 20221002, end: 20221002
  3. ETOPOSIDE [Suspect]
     Active Substance: ETOPOSIDE
     Indication: B-cell lymphoma
     Dosage: 50 MG, SINGLE
     Route: 042
     Dates: start: 20221002, end: 20221002
  4. ETOPOSIDE [Suspect]
     Active Substance: ETOPOSIDE
     Dosage: 100 MG, 1 DAY
     Route: 048
     Dates: start: 20221002, end: 20221003

REACTIONS (3)
  - Drug interaction [Recovering/Resolving]
  - Sepsis [Recovering/Resolving]
  - Intentional product use issue [Unknown]

NARRATIVE: CASE EVENT DATE: 20221017
